FAERS Safety Report 22399519 (Version 1)
Quarter: 2023Q2

REPORT INFORMATION
  Report Type: Spontaneous
  Country: KR (occurrence: KR)
  Receive Date: 20230602
  Receipt Date: 20230602
  Transmission Date: 20230721
  Serious: Yes (Death, Other)
  Sender: FDA-Public Use
  Company Number: KR-MYLANLABS-2023M1056944

PATIENT
  Sex: Male

DRUGS (1)
  1. CELEBREX [Interacting]
     Active Substance: CELECOXIB
     Indication: Product used for unknown indication
     Dosage: UNK
     Route: 065

REACTIONS (9)
  - Pulmonary embolism [Fatal]
  - Thrombosis [Fatal]
  - Blood pressure increased [Fatal]
  - Labelled drug-drug interaction medication error [Fatal]
  - Sweat gland disorder [Unknown]
  - Haemoptysis [Unknown]
  - Chest pain [Unknown]
  - Nausea [Unknown]
  - Vomiting [Unknown]
